FAERS Safety Report 11823390 (Version 1)
Quarter: 2015Q4

REPORT INFORMATION
  Report Type: Spontaneous
  Country: US (occurrence: US)
  Receive Date: 20151210
  Receipt Date: 20151210
  Transmission Date: 20160305
  Serious: No
  Sender: FDA-Public Use
  Company Number: US-009507513-1512USA000600

PATIENT
  Age: 22 Year
  Sex: Female
  Weight: 46.71 kg

DRUGS (1)
  1. NEXPLANON [Suspect]
     Active Substance: ETONOGESTREL
     Indication: CONTRACEPTION
     Dosage: 1 ROD UPTO 3 YEARS
     Route: 059
     Dates: start: 20150324

REACTIONS (7)
  - Emotional disorder [Unknown]
  - Haemorrhage [Unknown]
  - Menstruation irregular [Unknown]
  - Unintended pregnancy [Unknown]
  - Fatigue [Unknown]
  - Decreased appetite [Unknown]
  - Crying [Unknown]

NARRATIVE: CASE EVENT DATE: 2015
